FAERS Safety Report 4531869-8 (Version None)
Quarter: 2004Q4

REPORT INFORMATION
  Report Type: 
  Country: None (occurrence: None)
  Receive Date: 20041220
  Receipt Date: 20041214
  Transmission Date: 20050328
  Serious: Yes (Hospitalization)
  Sender: FDA-Public Use
  Company Number: US-JNJFOC-20041006909

PATIENT
  Sex: Female

DRUGS (3)
  1. DURAGESIC [Suspect]
     Route: 062
     Dates: start: 20041014
  2. LANOXIN [Concomitant]
     Route: 049
  3. COUMADIN [Concomitant]

REACTIONS (5)
  - ANAEMIA [None]
  - ARTHRALGIA [None]
  - DRUG INEFFECTIVE [None]
  - NAUSEA [None]
  - UNEXPECTED THERAPEUTIC DRUG EFFECT [None]
